FAERS Safety Report 6096573-6 (Version None)
Quarter: 2009Q1

REPORT INFORMATION
  Report Type: 
  Country: None (occurrence: None)
  Receive Date: 20090225
  Receipt Date: 20090225
  Transmission Date: 20090719
  Serious: Yes (Other)
  Sender: FDA-Public Use
  Company Number: None

PATIENT
  Age: 39 Year
  Sex: Female
  Weight: 60.782 kg

DRUGS (2)
  1. GABAPENTIN [Suspect]
     Indication: ALCOHOLISM
     Dosage: 300 MG, 3X/D, ORAL
     Route: 048
     Dates: start: 20081125, end: 20090217
  2. LO/OVRAL [Concomitant]

REACTIONS (3)
  - BLOOD HUMAN CHORIONIC GONADOTROPIN POSITIVE [None]
  - DRUG EXPOSURE DURING PREGNANCY [None]
  - PREGNANCY ON ORAL CONTRACEPTIVE [None]
